FAERS Safety Report 5352648-8 (Version None)
Quarter: 2007Q2

REPORT INFORMATION
  Report Type: 
  Country: None (occurrence: None)
  Receive Date: 20070518
  Receipt Date: 20070404
  Transmission Date: 20071010
  Serious: No
  Sender: FDA-Public Use
  Company Number: TPA2007A00492

PATIENT
  Age: 69 Year
  Sex: Female
  Weight: 79.3795 kg

DRUGS (4)
  1. ROZEREM [Suspect]
     Indication: MIDDLE INSOMNIA
     Dosage: 8 MG, HS, PER ORAL
     Route: 048
     Dates: start: 20070309
  2. LOVASTATIN [Concomitant]
  3. BUSPIRONE HCL [Concomitant]
  4. ATENOLOL [Concomitant]

REACTIONS (1)
  - MIDDLE INSOMNIA [None]
